FAERS Safety Report 8962956 (Version 1)
Quarter: 2012Q4

REPORT INFORMATION
  Report Type: 
  Country: US (occurrence: US)
  Receive Date: 20121213
  Receipt Date: 20121213
  Transmission Date: 20130627
  Serious: Yes (Other)
  Sender: FDA-Public Use
  Company Number: US-PFIZER INC-2012313253

PATIENT
  Age: 83 Year
  Sex: Male

DRUGS (2)
  1. TIKOSYN [Suspect]
     Dosage: 0.25mg two times a day
     Route: 048
     Dates: start: 20100304
  2. CIPROFLOXACIN [Interacting]
     Dosage: 500mg two times a day

REACTIONS (2)
  - Surgery [Unknown]
  - Drug interaction [Unknown]
